FAERS Safety Report 15058117 (Version 1)
Quarter: 2018Q2

REPORT INFORMATION
  Report Type: Spontaneous
  Country: US (occurrence: US)
  Receive Date: 20180625
  Receipt Date: 20180625
  Transmission Date: 20180711
  Serious: No
  Sender: FDA-Public Use
  Company Number: US-PFIZER INC-2018255121

PATIENT
  Age: 65 Year

DRUGS (3)
  1. ROFECOXIB [Suspect]
     Active Substance: ROFECOXIB
     Dosage: UNK
  2. MELOXICAM. [Suspect]
     Active Substance: MELOXICAM
     Dosage: UNK
  3. GABAPENTIN. [Suspect]
     Active Substance: GABAPENTIN
     Dosage: UNK

REACTIONS (1)
  - Drug hypersensitivity [Unknown]
